FAERS Safety Report 13500168 (Version 2)
Quarter: 2017Q2

REPORT INFORMATION
  Report Type: Spontaneous
  Country: US (occurrence: US)
  Receive Date: 20170501
  Receipt Date: 20170504
  Transmission Date: 20170830
  Serious: Yes (Other)
  Sender: FDA-Public Use
  Company Number: US-SHIRE-US201709566

PATIENT
  Sex: Female

DRUGS (1)
  1. XIIDRA [Suspect]
     Active Substance: LIFITEGRAST
     Indication: DRY EYE
     Dosage: 1 GTT(EACH EYE), 2X/DAY:BID
     Route: 047
     Dates: start: 201610

REACTIONS (3)
  - Eyelid margin crusting [Recovered/Resolved]
  - Instillation site erythema [Recovered/Resolved]
  - Hypersensitivity [Recovered/Resolved]
